FAERS Safety Report 6922384-2 (Version None)
Quarter: 2010Q3

REPORT INFORMATION
  Report Type: 
  Country: None (occurrence: None)
  Receive Date: 20100813
  Receipt Date: 20100805
  Transmission Date: 20110219
  Serious: Yes (Other)
  Sender: FDA-Public Use
  Company Number: US-JNJFOC-20100802440

PATIENT
  Sex: Female
  Weight: 141.98 kg

DRUGS (14)
  1. DURAGESIC-100 [Suspect]
     Indication: BACK PAIN
     Route: 062
  2. DURAGESIC-100 [Suspect]
     Route: 062
  3. LISINOPRIL [Concomitant]
     Indication: HYPERTENSION
     Route: 048
  4. OXYCODONE [Concomitant]
     Indication: BREAKTHROUGH PAIN
     Route: 048
  5. PANTOPRAZOLE [Concomitant]
     Indication: GASTROOESOPHAGEAL REFLUX DISEASE
     Route: 048
  6. AMITRIPTYLINE [Concomitant]
     Indication: PAIN
     Route: 048
  7. MOBIC [Concomitant]
     Indication: ARTHRITIS
     Route: 048
  8. LYRICA [Concomitant]
     Indication: NERVE INJURY
     Route: 048
  9. MULTIVITAMIN [Concomitant]
     Indication: GENERAL PHYSICAL CONDITION
     Route: 048
  10. CALCIUM [Concomitant]
     Indication: GENERAL PHYSICAL CONDITION
     Route: 048
  11. VITAMINE E [Concomitant]
     Indication: GENERAL PHYSICAL CONDITION
     Route: 048
  12. VITAMIN B COMPLEX CAP [Concomitant]
     Indication: GENERAL PHYSICAL CONDITION
     Route: 048
  13. MOVE FREE [Concomitant]
     Indication: GENERAL PHYSICAL CONDITION
     Route: 048
  14. UNSPECIFIED CONSTIPATION MEDICATIONS [Concomitant]
     Indication: CONSTIPATION
     Route: 048

REACTIONS (7)
  - BODY HEIGHT DECREASED [None]
  - DEPRESSION [None]
  - FALL [None]
  - PAIN [None]
  - PRODUCT QUALITY ISSUE [None]
  - TREATMENT NONCOMPLIANCE [None]
  - WEIGHT DECREASED [None]
